FAERS Safety Report 7878390-7 (Version None)
Quarter: 2011Q4

REPORT INFORMATION
  Report Type: 
  Country: None (occurrence: None)
  Receive Date: 20111031
  Receipt Date: 20111021
  Transmission Date: 20120403
  Serious: Yes (Life-Threatening, Other)
  Sender: FDA-Public Use
  Company Number: 2011SP049651

PATIENT
  Age: 59 Year
  Sex: Female

DRUGS (2)
  1. HYALURONIC ACID (PREV.) [Concomitant]
  2. BETAMETHASONE SODIUM PHOSPHATE [Suspect]
     Indication: TRIGGER FINGER
     Dosage: 1 DF; ONCE;
     Dates: start: 20110922, end: 20110922

REACTIONS (3)
  - ANAPHYLACTIC SHOCK [None]
  - OEDEMA GENITAL [None]
  - URTICARIA [None]
